FAERS Safety Report 9511992 (Version 1)
Quarter: 2013Q1

REPORT INFORMATION
  Report Type: Spontaneous
  Country: US (occurrence: None)
  Receive Date: 20130305
  Receipt Date: 20130305
  Transmission Date: 20140127
  Serious: Yes (Hospitalization)
  Sender: FDA-Public Use
  Company Number: 163-21880-12010073

PATIENT
  Sex: Female

DRUGS (11)
  1. REVLIMID (LENALIDOMIDE) (CAPSULES) [Suspect]
     Indication: PLASMA CELL MYELOMA
     Route: 048
     Dates: start: 20111216
  2. VITAMIN C [Concomitant]
  3. VITAMIN B COMPLEX (B-KOMPLEX ^LECIVA^) (UNKNOWN) [Concomitant]
  4. SIMVASTATIN [Concomitant]
  5. OMEPRAZOLE (OMEPRAZOLE) (UNKNOWN) [Concomitant]
  6. NIASPAN (NICOTIC ACID) (UNKNOWN) [Concomitant]
  7. MICARDIS (TELMISARTAN) (UNKNOWN) [Concomitant]
  8. GLUCOSAMINE CHONDROITIN (GLUSOSAMINE W/CHONDROITIN SULFATE) (UNKNOWN) [Concomitant]
  9. (ALLOPURINOL) (ALLOPURINOL) (UNKNOWN) [Concomitant]
  10. FISH OIL (FISH OIL) (UNKNOWN) [Concomitant]
  11. AMLODIPINE BESYLATE (AMLODIPINE BESILATE) (UNKNOWN) [Concomitant]

REACTIONS (2)
  - Diarrhoea [None]
  - Vomiting [None]
